FAERS Safety Report 25533970 (Version 1)
Quarter: 2025Q3

REPORT INFORMATION
  Report Type: Spontaneous
  Country: MX (occurrence: MX)
  Receive Date: 20250709
  Receipt Date: 20250709
  Transmission Date: 20251020
  Serious: Yes (Death, Other)
  Sender: GENMAB
  Company Number: MX-ABBVIE-6362291

PATIENT

DRUGS (1)
  1. EPKINLY [Suspect]
     Active Substance: EPCORITAMAB-BYSP
     Indication: Diffuse large B-cell lymphoma
     Dosage: 48 MILLIGRAM 1Q4W (EVERY 28 DAY)
     Route: 058
     Dates: end: 20250322

REACTIONS (1)
  - Acute myocardial infarction [Fatal]

NARRATIVE: CASE EVENT DATE: 20250705
